FAERS Safety Report 23420160 (Version 3)
Quarter: 2024Q1

REPORT INFORMATION
  Report Type: Spontaneous
  Country: US (occurrence: US)
  Receive Date: 20240119
  Receipt Date: 20240223
  Transmission Date: 20240410
  Serious: No
  Sender: FDA-Public Use
  Company Number: US-GLAXOSMITHKLINE-US2024AMR007406

PATIENT
  Age: 66 Year
  Sex: Female

DRUGS (5)
  1. ZEJULA [Suspect]
     Active Substance: NIRAPARIB
     Indication: Ovarian cancer
     Dosage: 100 MG, QD
     Dates: start: 20231230
  2. ZEJULA [Suspect]
     Active Substance: NIRAPARIB
     Dosage: 200 MG, QD
     Route: 048
     Dates: end: 20240112
  3. ZEJULA [Suspect]
     Active Substance: NIRAPARIB
     Dosage: 200 MG, QD
     Dates: start: 20240119
  4. LYNPARZA [Concomitant]
     Active Substance: OLAPARIB
     Indication: Product used for unknown indication
     Dosage: UNK
  5. THALOMID [Concomitant]
     Active Substance: THALIDOMIDE
     Indication: Product used for unknown indication
     Dosage: UNK

REACTIONS (9)
  - Malaise [Not Recovered/Not Resolved]
  - Carbohydrate antigen 125 increased [Not Recovered/Not Resolved]
  - Fatigue [Not Recovered/Not Resolved]
  - Constipation [Unknown]
  - Abdominal cavity drainage [Not Recovered/Not Resolved]
  - Insomnia [Unknown]
  - Feeling abnormal [Not Recovered/Not Resolved]
  - Asthenia [Not Recovered/Not Resolved]
  - Wrong technique in product usage process [Unknown]

NARRATIVE: CASE EVENT DATE: 20240118
